FAERS Safety Report 8384950-X (Version None)
Quarter: 2012Q2

REPORT INFORMATION
  Report Type: 
  Country: None (occurrence: None)
  Receive Date: 20120524
  Receipt Date: 20120515
  Transmission Date: 20120825
  Serious: Yes (Hospitalization)
  Sender: FDA-Public Use
  Company Number: CH-CELGENEUS-151-50794-12051640

PATIENT
  Age: 78 Year
  Sex: Female

DRUGS (13)
  1. DIGOXIN [Concomitant]
     Indication: ATRIAL FIBRILLATION
     Dosage: .125 MILLIGRAM
     Route: 048
  2. ASPIRIN [Concomitant]
     Dosage: 100 MILLIGRAM
     Route: 048
     Dates: start: 20120327
  3. ATORVASTATIN CALCIUM [Concomitant]
     Dosage: 10 MILLIGRAM
     Route: 048
     Dates: start: 20120327
  4. IMIPENEM AND CILASTATIN SODIUM [Suspect]
     Indication: URINARY TRACT INFECTION
     Dosage: 2000 MILLIGRAM
     Route: 041
     Dates: start: 20120317, end: 20120322
  5. METOPROLOL SUCCINATE [Concomitant]
     Indication: SECONDARY HYPERTENSION
     Dosage: 150 MILLIGRAM
     Route: 048
  6. TORSEMIDE [Concomitant]
     Indication: SECONDARY HYPERTENSION
     Dosage: 5 MILLIGRAM
     Route: 048
  7. VIDAZA [Suspect]
     Dosage: REDUCED DOSE (67% OF 100MG/M2)
     Route: 041
     Dates: start: 20111003, end: 20111223
  8. AMOXICILLIN [Suspect]
     Indication: URINARY TRACT INFECTION
     Dosage: 2250 MILLIGRAM
     Route: 048
     Dates: start: 20120322, end: 20120327
  9. REVLIMID [Suspect]
     Dosage: 10 MILLIGRAM
     Route: 048
     Dates: start: 20081201, end: 20110501
  10. VIDAZA [Suspect]
     Dosage: 50 MILLIGRAM/SQ. METER
     Route: 041
     Dates: start: 20110822, end: 20110826
  11. ENOXAPARIN SODIUM [Concomitant]
     Dosage: 40 MILLIGRAM
     Route: 058
     Dates: start: 20120326
  12. VIDAZA [Suspect]
     Dosage: 100 MILLIGRAM/SQ. METER
     Route: 041
     Dates: start: 20110620, end: 20120224
  13. VIDAZA [Suspect]
     Dosage: 50 MILLIGRAM/SQ. METER
     Route: 041
     Dates: start: 20120220, end: 20120224

REACTIONS (1)
  - ACUTE FEBRILE NEUTROPHILIC DERMATOSIS [None]
